FAERS Safety Report 24783153 (Version 2)
Quarter: 2025Q2

REPORT INFORMATION
  Report Type: Spontaneous
  Country: CN (occurrence: CN)
  Receive Date: 20241227
  Receipt Date: 20250608
  Transmission Date: 20250716
  Serious: Yes (Death, Hospitalization)
  Sender: COHERUS
  Company Number: CN-SHANGHAI JUNSHI BIOSCIENCES CO., LTD.-CN2024012519

PATIENT

DRUGS (4)
  1. TORIPALIMAB [Suspect]
     Active Substance: TORIPALIMAB
     Indication: Transitional cell cancer of the renal pelvis and ureter
     Dates: start: 20240531
  2. TORIPALIMAB [Suspect]
     Active Substance: TORIPALIMAB
     Indication: Metastases to lymph nodes
  3. DISITAMAB VEDOTIN [Concomitant]
     Active Substance: DISITAMAB VEDOTIN
     Indication: Transitional cell cancer of the renal pelvis and ureter
     Dates: start: 20240531
  4. DISITAMAB VEDOTIN [Concomitant]
     Active Substance: DISITAMAB VEDOTIN
     Indication: Metastases to lymph nodes

REACTIONS (12)
  - Hyperglycaemia [Fatal]
  - Ketoacidosis [Fatal]
  - Infection [Fatal]
  - Pruritus [Unknown]
  - Abdominal distension [Unknown]
  - Decreased appetite [Unknown]
  - Alopecia [Unknown]
  - Listless [Unknown]
  - Marasmus [Unknown]
  - Rash [Unknown]
  - Diarrhoea [Unknown]
  - Off label use [Unknown]

NARRATIVE: CASE EVENT DATE: 20240614
